FAERS Safety Report 11886556 (Version 2)
Quarter: 2016Q2

REPORT INFORMATION
  Report Type: Spontaneous
  Country: US (occurrence: US)
  Receive Date: 20160104
  Receipt Date: 20160420
  Transmission Date: 20160815
  Serious: No
  Sender: FDA-Public Use
  Company Number: US-PFIZER INC-2015436154

PATIENT
  Age: 57 Year
  Sex: Female
  Weight: 73 kg

DRUGS (6)
  1. GABAPENTIN. [Suspect]
     Active Substance: GABAPENTIN
     Indication: COMPLEX REGIONAL PAIN SYNDROME
     Dosage: 1200 MG, 3X/DAY
  2. LITHIUM. [Concomitant]
     Active Substance: LITHIUM
     Dosage: 300 MG, 2X/DAY
     Route: 048
     Dates: start: 2004
  3. LITHIUM. [Concomitant]
     Active Substance: LITHIUM
     Indication: BIPOLAR DISORDER
     Dosage: UNK
     Dates: start: 2003
  4. ADVAIR HFA [Concomitant]
     Active Substance: FLUTICASONE PROPIONATE\SALMETEROL XINAFOATE
     Indication: ASTHMA
     Dosage: UNK
     Dates: start: 2003
  5. LEXAPRO [Concomitant]
     Active Substance: ESCITALOPRAM OXALATE
     Indication: MAJOR DEPRESSION
     Dosage: 20 MG, 1X/DAY
     Dates: start: 2010
  6. ADVAIR HFA [Concomitant]
     Active Substance: FLUTICASONE PROPIONATE\SALMETEROL XINAFOATE
     Dosage: 500/250 ONE PUFF TWICE A DAY
     Dates: start: 2014

REACTIONS (1)
  - Drug ineffective for unapproved indication [Recovered/Resolved]
